FAERS Safety Report 8401318-8 (Version None)
Quarter: 2012Q2

REPORT INFORMATION
  Report Type: 
  Country: None (occurrence: None)
  Receive Date: 20120601
  Receipt Date: 20120524
  Transmission Date: 20120825
  Serious: Yes (Death, Life-Threatening, Other)
  Sender: FDA-Public Use
  Company Number: JP-MPIJNJ-2011-06397

PATIENT

DRUGS (20)
  1. OXYCONTIN [Concomitant]
     Indication: BACK PAIN
     Dosage: 20 MG, UNK
     Route: 048
     Dates: start: 20111122, end: 20111203
  2. VALTREX [Concomitant]
     Indication: PROPHYLAXIS
     Dosage: 500 MG, UNK
     Route: 048
     Dates: start: 20111128, end: 20111206
  3. FENTANYL-100 [Concomitant]
     Indication: BACK PAIN
     Dosage: UNK
     Dates: start: 20111204, end: 20111208
  4. OXINORM                            /00547301/ [Concomitant]
     Indication: BACK PAIN
     Dosage: UNK
     Route: 048
     Dates: start: 20111122, end: 20111203
  5. OXINORM                            /00547301/ [Concomitant]
     Dosage: UNK
     Route: 048
     Dates: start: 20111203, end: 20111203
  6. CONIEL [Concomitant]
     Indication: MYOCARDIAL INFARCTION
     Dosage: 4 MG, UNK
     Route: 048
     Dates: start: 20111203, end: 20111208
  7. CANDESARTAN CILEXETIL [Concomitant]
     Indication: MYOCARDIAL INFARCTION
     Dosage: 8 MG, UNK
     Route: 048
     Dates: start: 20111203, end: 20111208
  8. VELCADE [Suspect]
     Indication: MULTIPLE MYELOMA
     Dosage: 1.6 MG, UNK
     Route: 042
     Dates: start: 20111121, end: 20111201
  9. NATEGLINIDE [Concomitant]
     Indication: DIABETIC NEPHROPATHY
     Dosage: 270 MG, UNK
     Route: 048
     Dates: start: 20111203, end: 20111207
  10. PLAVIX [Concomitant]
     Indication: MYOCARDIAL INFARCTION
     Dosage: 75 MG, UNK
     Route: 048
     Dates: start: 20111203, end: 20111208
  11. MELPHALAN HYDROCHLORIDE [Concomitant]
     Indication: MULTIPLE MYELOMA
     Dosage: 6 MG, UNK
     Route: 048
     Dates: start: 20011121, end: 20111124
  12. PREDNISOLONE [Concomitant]
     Indication: MULTIPLE MYELOMA
     Dosage: 45 MG, UNK
     Route: 048
     Dates: start: 20111121, end: 20111124
  13. BISOPROLOL FUMARATE [Concomitant]
     Indication: MYOCARDIAL INFARCTION
     Dosage: 2.5 MG, UNK
     Route: 048
     Dates: start: 20111203, end: 20111208
  14. ASPIRIN [Concomitant]
     Indication: MYOCARDIAL INFARCTION
     Dosage: 100 MG, UNK
     Route: 048
     Dates: start: 20111203, end: 20111208
  15. PURSENNID                          /00142207/ [Concomitant]
     Indication: BACK PAIN
     Dosage: 48 MG, UNK
     Dates: start: 20111123, end: 20111208
  16. CELECOXIB [Concomitant]
     Dosage: 200 MG, UNK
     Route: 048
     Dates: start: 20111203, end: 20111208
  17. LANSOPRAZOLE [Concomitant]
     Indication: MYOCARDIAL INFARCTION
     Dosage: 15 MG, UNK
     Route: 048
     Dates: start: 20111203, end: 20111208
  18. NOVAMIN                            /00013301/ [Concomitant]
     Indication: BACK PAIN
     Dosage: 10 MG, UNK
     Route: 048
     Dates: start: 20111203, end: 20111208
  19. VOLTAREN [Concomitant]
     Dosage: 50 MG, UNK
     Route: 054
     Dates: start: 20111206, end: 20111206
  20. LEVOTOMIN                          /00038602/ [Concomitant]
     Dosage: 0.05 G, UNK
     Route: 048
     Dates: start: 20111203, end: 20111208

REACTIONS (3)
  - NEUTROPHIL COUNT DECREASED [None]
  - SEPTIC SHOCK [None]
  - PLATELET COUNT DECREASED [None]
